FAERS Safety Report 9490352 (Version 2)
Quarter: 2013Q3

REPORT INFORMATION
  Report Type: Spontaneous
  Country: CA (occurrence: CA)
  Receive Date: 20130830
  Receipt Date: 20130903
  Transmission Date: 20140515
  Serious: Yes (Other)
  Sender: FDA-Public Use
  Company Number: CA-JNJFOC-20130809868

PATIENT
  Sex: 0

DRUGS (1)
  1. VISINE [Suspect]
     Indication: POISONING
     Route: 065

REACTIONS (1)
  - Poisoning [Unknown]
